FAERS Safety Report 8363138-2 (Version None)
Quarter: 2012Q2

REPORT INFORMATION
  Report Type: 
  Country: None (occurrence: None)
  Receive Date: 20120516
  Receipt Date: 20120514
  Transmission Date: 20120825
  Serious: No
  Sender: FDA-Public Use
  Company Number: US-BAYER-2012-047475

PATIENT
  Sex: Male

DRUGS (1)
  1. CIPROFLOXACIN HCL [Suspect]
     Indication: URINARY TRACT INFECTION
     Dosage: 500 MG, BID
     Route: 048
     Dates: start: 20111225, end: 20111230

REACTIONS (7)
  - PARAESTHESIA [None]
  - SKIN DISCOLOURATION [None]
  - RASH [None]
  - OSCILLOPSIA [None]
  - ARTHRALGIA [None]
  - HEARING IMPAIRED [None]
  - INSOMNIA [None]
